FAERS Safety Report 16840078 (Version 5)
Quarter: 2021Q3

REPORT INFORMATION
  Report Type: Report from Study
  Country: FR (occurrence: FR)
  Receive Date: 20190923
  Receipt Date: 20210804
  Transmission Date: 20211014
  Serious: Yes (Life-Threatening, Hospitalization, Other)
  Sender: FDA-Public Use
  Company Number: FR-B.I. PHARMACEUTICALS,INC./RIDGEFIELD-2019-BI-101086

PATIENT
  Age: 70 Year
  Sex: Female
  Weight: 50.5 kg

DRUGS (1)
  1. AFATINIB [Suspect]
     Active Substance: AFATINIB
     Indication: SQUAMOUS CELL CARCINOMA OF HEAD AND NECK
     Route: 048
     Dates: start: 20190723, end: 20190818

REACTIONS (8)
  - Bacterial infection [Recovering/Resolving]
  - Shock haemorrhagic [Recovered/Resolved]
  - Lung disorder [Recovering/Resolving]
  - Myocardial ischaemia [Not Recovered/Not Resolved]
  - Acute respiratory distress syndrome [Recovered/Resolved with Sequelae]
  - Intestinal ischaemia [Recovered/Resolved with Sequelae]
  - Septic shock [Recovered/Resolved]
  - Gastric ulcer [Recovering/Resolving]

NARRATIVE: CASE EVENT DATE: 20190819
